FAERS Safety Report 7569217-1 (Version None)
Quarter: 2011Q2

REPORT INFORMATION
  Report Type: 
  Country: None (occurrence: None)
  Receive Date: 20110623
  Receipt Date: 20110613
  Transmission Date: 20111010
  Serious: Yes (Other)
  Sender: FDA-Public Use
  Company Number: PHEH2011US00489

PATIENT
  Sex: Female

DRUGS (3)
  1. AREDIA [Suspect]
     Indication: OSTEOPOROSIS
     Dosage: QMO
     Dates: start: 20040101, end: 20060101
  2. AREDIA [Suspect]
     Indication: BONE LOSS
  3. ARIMIDEX [Concomitant]

REACTIONS (9)
  - ABDOMINAL HERNIA [None]
  - OSTEOLYSIS [None]
  - METASTASES TO BONE [None]
  - SMALL INTESTINAL OBSTRUCTION [None]
  - METASTASES TO SPINE [None]
  - LENTIGO [None]
  - NEOPLASM MALIGNANT [None]
  - BONE LESION [None]
  - FIBROUS HISTIOCYTOMA [None]
